FAERS Safety Report 14041815 (Version 1)
Quarter: 2017Q4

REPORT INFORMATION
  Report Type: Report from Study
  Country: US (occurrence: US)
  Receive Date: 20171004
  Receipt Date: 20171004
  Transmission Date: 20180321
  Serious: No
  Sender: FDA-Public Use
  Company Number: US-AMGEN-USASL2016150595

PATIENT
  Age: 65 Year
  Sex: Female

DRUGS (3)
  1. ATELVIA [Concomitant]
     Active Substance: RISEDRONATE SODIUM
  2. RANITIDINE. [Concomitant]
     Active Substance: RANITIDINE
     Indication: GASTROINTESTINAL DISORDER
  3. PROLIA [Suspect]
     Active Substance: DENOSUMAB
     Indication: BONE DENSITY ABNORMAL
     Dosage: 60 MG, Q6MO
     Route: 058
     Dates: start: 2015

REACTIONS (1)
  - Off label use [Unknown]
